FAERS Safety Report 5318094-8 (Version None)
Quarter: 2007Q1

REPORT INFORMATION
  Report Type: 
  Country: None (occurrence: None)
  Receive Date: 20070207
  Receipt Date: 20061228
  Transmission Date: 20070707
  Serious: No
  Sender: FDA-Public Use
  Company Number: SPV1-2006-02287

PATIENT
  Age: 57 Year
  Sex: Female
  Weight: 49.9 kg

DRUGS (3)
  1. FOSRENOL [Suspect]
     Indication: HYPERPHOSPHATAEMIA
     Dosage: 500 MG, 3X/DAY:TID, ORAL
     Route: 048
     Dates: start: 20061201, end: 20061228
  2. ARANESP [Concomitant]
  3. ZEMPLAR [Concomitant]

REACTIONS (2)
  - ASTHENIA [None]
  - PRURITUS [None]
